FAERS Safety Report 6969415-1 (Version None)
Quarter: 2010Q3

REPORT INFORMATION
  Report Type: 
  Country: None (occurrence: None)
  Receive Date: 20100902
  Receipt Date: 20100817
  Transmission Date: 20110219
  Serious: Yes (Death)
  Sender: FDA-Public Use
  Company Number: FKO201000337

PATIENT
  Age: 57 Year
  Sex: Female

DRUGS (4)
  1. FLUOROURACIL [Suspect]
     Indication: BILE DUCT CANCER
     Dosage: (FORTNIGHTLY BASIS)
  2. OXALIPLATIN (OXALIPLATIN) (OXALIPLATIN) [Concomitant]
  3. FOLINIC ACID (FOLINIC ACID) (FOLINIC ACID) [Concomitant]
  4. METAMIZOLE (METAMIZOLE) (METAMIZOLE) [Concomitant]

REACTIONS (6)
  - HAEMATOCRIT DECREASED [None]
  - HAEMOGLOBIN DECREASED [None]
  - HAEMOLYSIS [None]
  - RED BLOOD CELL COUNT DECREASED [None]
  - SHOCK [None]
  - SOMNOLENCE [None]
